FAERS Safety Report 9241037 (Version 1)
Quarter: 2013Q1

REPORT INFORMATION
  Report Type: Spontaneous
  Country: US (occurrence: None)
  Receive Date: 20121120
  Receipt Date: 20121120
  Transmission Date: 20140127
  Serious: No
  Sender: FDA-Public Use
  Company Number: 1000039443

PATIENT
  Age: 50 Year
  Sex: Female

DRUGS (4)
  1. VIIBRYD [Suspect]
     Indication: DEPRESSION
     Route: 048
     Dates: start: 20121008
  2. NEUROTIN (GABAPENTIN) (GABAPENTIN) [Concomitant]
  3. ATIVAN (LORAZEPAM) (LORAZEPAM) [Concomitant]
  4. SEROQUEL (QUETIAPINE FUMARATE) (QUETIAPINE FUMARATE) [Concomitant]

REACTIONS (5)
  - Headache [None]
  - Palpitations [None]
  - Fatigue [None]
  - Nausea [None]
  - Dizziness [None]
